FAERS Safety Report 8576592-8 (Version None)
Quarter: 2012Q3

REPORT INFORMATION
  Report Type: 
  Country: None (occurrence: None)
  Receive Date: 20120807
  Receipt Date: 20120730
  Transmission Date: 20120928
  Serious: Yes (Hospitalization)
  Sender: FDA-Public Use
  Company Number: CA-JNJFOC-20120710931

PATIENT
  Sex: Female
  Weight: 75 kg

DRUGS (5)
  1. INHIBACE [Concomitant]
     Route: 065
  2. NOVOSPIROTON [Concomitant]
     Route: 065
  3. REMICADE [Suspect]
     Route: 042
     Dates: start: 20031001
  4. VERAPAMIL HCL [Concomitant]
     Route: 065
  5. REMICADE [Suspect]
     Indication: CROHN'S DISEASE
     Route: 042
     Dates: start: 20120529

REACTIONS (1)
  - LUNG NEOPLASM MALIGNANT [None]
